FAERS Safety Report 15512298 (Version 1)
Quarter: 2018Q4

REPORT INFORMATION
  Report Type: Spontaneous
  Country: US (occurrence: US)
  Receive Date: 20181011
  Receipt Date: 20181011
  Transmission Date: 20190205
  Serious: No
  Sender: FDA-Public Use
  Company Number: None

PATIENT
  Age: 46 Year
  Sex: Female

DRUGS (1)
  1. HYDROXYPROGESTERONE 250MG/ML (1ML SDV) [Suspect]
     Active Substance: HYDROXYPROGESTERONE
     Indication: PRODUCT USED FOR UNKNOWN INDICATION
     Dates: start: 201807

REACTIONS (2)
  - Procedural complication [None]
  - Needle issue [None]

NARRATIVE: CASE EVENT DATE: 20180929
